FAERS Safety Report 8012675-9 (Version None)
Quarter: 2011Q4

REPORT INFORMATION
  Report Type: 
  Country: None (occurrence: None)
  Receive Date: 20111229
  Receipt Date: 20111119
  Transmission Date: 20120403
  Serious: No
  Sender: FDA-Public Use
  Company Number: US-MYLANLABS-2011S1024145

PATIENT
  Sex: Female

DRUGS (1)
  1. TRAZODONE HCL [Suspect]
     Dates: start: 20090101

REACTIONS (2)
  - BACK PAIN [None]
  - MYALGIA [None]
